FAERS Safety Report 4382830-8 (Version None)
Quarter: 2004Q2

REPORT INFORMATION
  Report Type: 
  Country: None (occurrence: None)
  Receive Date: 20040602
  Receipt Date: 20031001
  Transmission Date: 20050107
  Serious: Yes (Life-Threatening)
  Sender: FDA-Public Use
  Company Number: NSADSS2001036532

PATIENT
  Sex: Female
  Weight: 113.3993 kg

DRUGS (5)
  1. PROPULSID [Suspect]
     Indication: GASTROOESOPHAGEAL REFLUX DISEASE
     Dosage: 10 MG, 4 IN 1 DAY, ORAL
     Route: 048
     Dates: start: 19950101
  2. ERYTHROMYCIN [Concomitant]
  3. CEPHALEXIN [Concomitant]
  4. FUROSEMIDE [Concomitant]
  5. LOVASTATIN [Concomitant]

REACTIONS (7)
  - CHEST PAIN [None]
  - CORONARY ARTERY DISEASE [None]
  - DYSPNOEA [None]
  - ELECTROCARDIOGRAM QT CORRECTED INTERVAL PROLONGED [None]
  - HYPERTENSION [None]
  - HYPERTRIGLYCERIDAEMIA [None]
  - PULSE ABNORMAL [None]
